FAERS Safety Report 5908325-5 (Version None)
Quarter: 2008Q4

REPORT INFORMATION
  Report Type: 
  Country: None (occurrence: None)
  Receive Date: 20081006
  Receipt Date: 20080930
  Transmission Date: 20090506
  Serious: Yes (Hospitalization)
  Sender: FDA-Public Use
  Company Number: US-CELGENEUS-163-21880-08090342

PATIENT
  Sex: Male

DRUGS (5)
  1. REVLIMID [Suspect]
     Indication: MULTIPLE MYELOMA
     Route: 048
     Dates: start: 20080707
  2. REVLIMID [Suspect]
     Route: 048
     Dates: start: 20071217, end: 20080425
  3. REVLIMID [Suspect]
     Route: 048
     Dates: start: 20080425, end: 20080707
  4. WARFARIN SODIUM [Concomitant]
     Indication: DEEP VEIN THROMBOSIS
     Route: 065
     Dates: start: 20060101
  5. DEXAMETHASONE [Concomitant]
     Indication: MULTIPLE MYELOMA
     Route: 065
     Dates: start: 20060101

REACTIONS (8)
  - BRONCHITIS [None]
  - DIARRHOEA [None]
  - HAEMOPTYSIS [None]
  - HYPOTENSION [None]
  - INFECTION [None]
  - NEUROPATHY PERIPHERAL [None]
  - PNEUMONIA [None]
  - SEPSIS [None]
